FAERS Safety Report 5722323-6 (Version None)
Quarter: 2008Q2

REPORT INFORMATION
  Report Type: 
  Country: None (occurrence: None)
  Receive Date: 20080429
  Receipt Date: 20070806
  Transmission Date: 20081010
  Serious: No
  Sender: FDA-Public Use
  Company Number: US-ASTRAZENECA-2007UW18946

PATIENT
  Age: 90 Year
  Sex: Female
  Weight: 50.8 kg

DRUGS (4)
  1. NEXIUM [Suspect]
     Indication: HIATUS HERNIA
     Route: 048
     Dates: start: 20070501
  2. INDERAL [Concomitant]
  3. PROCARDIA [Concomitant]
  4. LIPITOR [Concomitant]

REACTIONS (1)
  - HYPOSMIA [None]
